FAERS Safety Report 9225762 (Version 2)
Quarter: 2013Q2

REPORT INFORMATION
  Report Type: Report from Study
  Country: US (occurrence: US)
  Receive Date: 20130411
  Receipt Date: 20130515
  Transmission Date: 20140414
  Serious: Yes (Death, Hospitalization)
  Sender: FDA-Public Use
  Company Number: US-ACTELION-A-US2013-81664

PATIENT
  Age: 51 Year
  Sex: Female

DRUGS (9)
  1. TRACLEER [Suspect]
     Indication: PULMONARY ARTERIAL HYPERTENSION
     Dosage: 62.5 MG, BID
     Route: 048
  2. COUMADIN [Concomitant]
  3. SILDENAFIL [Concomitant]
  4. FUROSEMIDE [Concomitant]
  5. ATENOLOL [Concomitant]
  6. GABAPENTIN [Concomitant]
  7. ONDASETRON [Concomitant]
  8. PANTOPRAZOLE [Concomitant]
  9. POTASSIUM [Concomitant]

REACTIONS (4)
  - Cerebrovascular accident [Fatal]
  - Unresponsive to stimuli [Fatal]
  - Splenic infarction [Not Recovered/Not Resolved]
  - Abdominal pain [Not Recovered/Not Resolved]
